FAERS Safety Report 6607768-4 (Version None)
Quarter: 2010Q1

REPORT INFORMATION
  Report Type: 
  Country: None (occurrence: None)
  Receive Date: 20100225
  Receipt Date: 20100225
  Transmission Date: 20100710
  Serious: No
  Sender: FDA-Public Use
  Company Number: None

PATIENT
  Sex: Female
  Weight: 64.4108 kg

DRUGS (2)
  1. FEXOFENADINE [Suspect]
     Indication: RHINITIS ALLERGIC
     Dosage: 180 MG 1 QD (PO)
     Route: 048
     Dates: start: 20080416
  2. FEXOFENADINE [Suspect]
     Indication: RHINITIS ALLERGIC
     Dosage: 180 MG 1 QD (PO)
     Route: 048
     Dates: start: 20080418

REACTIONS (1)
  - FATIGUE [None]
